FAERS Safety Report 8530324-8 (Version None)
Quarter: 2012Q3

REPORT INFORMATION
  Report Type: 
  Country: None (occurrence: None)
  Receive Date: 20120723
  Receipt Date: 20120720
  Transmission Date: 20120928
  Serious: Yes (Hospitalization)
  Sender: FDA-Public Use
  Company Number: US-PFIZER INC-2012175008

PATIENT

DRUGS (1)
  1. HEPARIN SODIUM [Suspect]
     Indication: RADIOTHERAPY
     Dosage: UNK, ONCE
     Route: 042
     Dates: start: 20120718, end: 20120718

REACTIONS (1)
  - HAEMATOMA [None]
